FAERS Safety Report 7492482-6 (Version None)
Quarter: 2011Q2

REPORT INFORMATION
  Report Type: 
  Country: None (occurrence: None)
  Receive Date: 20110519
  Receipt Date: 20110510
  Transmission Date: 20111010
  Serious: Yes (Hospitalization)
  Sender: FDA-Public Use
  Company Number: US-MYLANLABS-2011S1009604

PATIENT
  Age: 89 Year
  Sex: Female
  Weight: 41.73 kg

DRUGS (3)
  1. ACETAMINOPHEN AND HYDROCODONE BITARTRATE [Suspect]
     Indication: CANCER PAIN
     Route: 048
  2. FENTANYL-100 [Suspect]
     Indication: CANCER PAIN
     Dosage: CHANGED Q72H
     Route: 062
     Dates: start: 20110209, end: 20110325
  3. ACETAMINOPHEN AND HYDROCODONE BITARTRATE [Suspect]
     Route: 048

REACTIONS (4)
  - DRUG PRESCRIBING ERROR [None]
  - CONFUSIONAL STATE [None]
  - VISUAL ACUITY REDUCED [None]
  - HEADACHE [None]
